FAERS Safety Report 10790152 (Version 1)
Quarter: 2015Q1

REPORT INFORMATION
  Report Type: Spontaneous
  Country: NL (occurrence: NL)
  Receive Date: 20150212
  Receipt Date: 20150212
  Transmission Date: 20150721
  Serious: Yes (Hospitalization)
  Sender: FDA-Public Use
  Company Number: PHHY2015NL014226

PATIENT
  Sex: Male

DRUGS (1)
  1. FLUVOXAMINE [Suspect]
     Active Substance: FLUVOXAMINE
     Indication: PRODUCT USED FOR UNKNOWN INDICATION
     Dosage: MATERNAL DOSE: 200 MG DAILY
     Route: 064

REACTIONS (10)
  - Sneezing [Recovered/Resolved]
  - Reflexes abnormal [Recovered/Resolved]
  - Tremor [Recovered/Resolved]
  - Crying [Recovered/Resolved]
  - Feeding disorder [Recovered/Resolved]
  - Neonatal behavioural syndrome [Recovered/Resolved]
  - Sleep disorder [Recovered/Resolved]
  - Agitation [Recovered/Resolved]
  - Foetal exposure during pregnancy [Unknown]
  - Hypertonia [Recovered/Resolved]
